FAERS Safety Report 9000714 (Version 4)
Quarter: 2013Q1

REPORT INFORMATION
  Report Type: Spontaneous
  Country: MX (occurrence: None)
  Receive Date: 20121226
  Receipt Date: 20130305
  Transmission Date: 20140127
  Serious: Yes (Other)
  Sender: FDA-Public Use
  Company Number: 2012-8294

PATIENT
  Age: 8 Year
  Sex: Female
  Weight: 17 kg

DRUGS (1)
  1. DYSPORT (BOTLINUM TOXIN TYPE A) (BOTULINUM TOXIN TYPE A) [Suspect]
     Indication: MUSCLE SPASTICITY
     Dosage: 600 UNITS (600 UNITS, 1 IN 1 CYCLE(S)), INTRAMUSCULAR
     Route: 030
     Dates: start: 20121106, end: 20121106

REACTIONS (3)
  - Grand mal convulsion [None]
  - Overdose [None]
  - Epilepsy [None]
